FAERS Safety Report 17534601 (Version 1)
Quarter: 2020Q1

REPORT INFORMATION
  Report Type: Spontaneous
  Country: US (occurrence: US)
  Receive Date: 20200312
  Receipt Date: 20200312
  Transmission Date: 20200409
  Serious: Yes (Other)
  Sender: FDA-Public Use
  Company Number: US-MYLANLABS-2020M1026217

PATIENT
  Sex: Female

DRUGS (1)
  1. EPINEPHRINE INJECTION USP AUTO-INJECTOR [Suspect]
     Active Substance: EPINEPHRINE
     Indication: PRODUCT USED FOR UNKNOWN INDICATION
     Dosage: UNK
     Route: 030
     Dates: start: 20200215, end: 20200215

REACTIONS (7)
  - Accidental exposure to product [Recovering/Resolving]
  - Injection site haemorrhage [Recovering/Resolving]
  - Fracture [Recovering/Resolving]
  - Injection site pain [Recovering/Resolving]
  - Injection site hypoaesthesia [Recovering/Resolving]
  - Needle issue [Recovering/Resolving]
  - Injury associated with device [Recovering/Resolving]
